FAERS Safety Report 5046257-8 (Version None)
Quarter: 2006Q2

REPORT INFORMATION
  Report Type: 
  Country: None (occurrence: None)
  Receive Date: 20060629
  Receipt Date: 20060616
  Transmission Date: 20061013
  Serious: Yes (Other)
  Sender: FDA-Public Use
  Company Number: 2006US-02612

PATIENT
  Age: 22 Year
  Sex: Female

DRUGS (2)
  1. ISOTRETINOIN [Suspect]
     Indication: ACNE
     Dosage: 30 MG, BID
     Dates: start: 20060417
  2. ORTHO TRI-CYCLEN [Concomitant]

REACTIONS (7)
  - AGEUSIA [None]
  - DRY EYE [None]
  - DYSGEUSIA [None]
  - FACIAL PARESIS [None]
  - HYPOAESTHESIA ORAL [None]
  - LIP DRY [None]
  - NECK PAIN [None]
